FAERS Safety Report 22609812 (Version 1)
Quarter: 2023Q2

REPORT INFORMATION
  Report Type: Spontaneous
  Country: US (occurrence: None)
  Receive Date: 20230615
  Receipt Date: 20230615
  Transmission Date: 20230722
  Serious: Yes (Life-Threatening, Hospitalization)
  Sender: FDA-Public Use
  Company Number: None

PATIENT
  Age: 71 Year
  Sex: Male
  Weight: 80.55 kg

DRUGS (1)
  1. MIRALAX [Suspect]
     Active Substance: POLYETHYLENE GLYCOL 3350
     Indication: Constipation
     Dosage: OTHER STRENGTH : CAPFUL;?OTHER QUANTITY : 1 CAPFUL;?FREQUENCY : DAILY;?
     Route: 048
     Dates: start: 20230114, end: 20230129

REACTIONS (6)
  - Abdominal pain [None]
  - Blood pressure increased [None]
  - General physical health deterioration [None]
  - Hypophagia [None]
  - Insomnia [None]
  - Dysuria [None]

NARRATIVE: CASE EVENT DATE: 20230116
